FAERS Safety Report 9713560 (Version 1)
Quarter: 2013Q4

REPORT INFORMATION
  Report Type: Spontaneous
  Country: US (occurrence: None)
  Receive Date: 20131125
  Receipt Date: 20131125
  Transmission Date: 20140711
  Serious: No
  Sender: FDA-Public Use
  Company Number: None

PATIENT
  Age: 65 Year
  Sex: Female
  Weight: 115.21 kg

DRUGS (11)
  1. SUCCINYLCHOLINE [Suspect]
     Indication: SURGERY
     Route: 042
     Dates: start: 20131101, end: 20131101
  2. ULTANE [Concomitant]
  3. PROPOFOL [Concomitant]
  4. ALFANTANIL [Concomitant]
  5. VERSED [Concomitant]
  6. LIDOCAINE [Concomitant]
  7. GLYCOPYRROLATE [Concomitant]
  8. METOCLOPRAMIDE [Concomitant]
  9. ONDANSETRON [Concomitant]
  10. ALBUTEROL [Concomitant]
  11. LACTATED RINGERS SOLUTION [Concomitant]

REACTIONS (2)
  - Pain [None]
  - Pain in extremity [None]
